FAERS Safety Report 25918421 (Version 2)
Quarter: 2025Q4

REPORT INFORMATION
  Report Type: Spontaneous
  Country: US (occurrence: US)
  Receive Date: 20251014
  Receipt Date: 20251110
  Transmission Date: 20260117
  Serious: No
  Sender: GLAXOSMITHKLINE
  Company Number: US-GSK-US2025AMR119457

PATIENT
  Sex: Male

DRUGS (1)
  1. ALBUTEROL SULFATE [Suspect]
     Active Substance: ALBUTEROL SULFATE
     Indication: Lung neoplasm
     Dosage: UNK

REACTIONS (4)
  - Expired product administered [Unknown]
  - Drug effective for unapproved indication [Unknown]
  - Off label use [Unknown]
  - Product complaint [Unknown]
